FAERS Safety Report 23832085 (Version 1)
Quarter: 2024Q2

REPORT INFORMATION
  Report Type: Spontaneous
  Country: US (occurrence: None)
  Receive Date: 20240507
  Receipt Date: 20240507
  Transmission Date: 20240716
  Serious: Yes (Hospitalization)
  Sender: FDA-Public Use
  Company Number: None

PATIENT
  Age: 66 Year
  Sex: Male
  Weight: 82.55 kg

DRUGS (1)
  1. METOPROLOL SUCCINATE [Suspect]
     Active Substance: METOPROLOL SUCCINATE
     Indication: Hypertension
     Dosage: FREQUENCY : TWICE A DAY;?
     Route: 048
     Dates: start: 20220301, end: 20220927

REACTIONS (6)
  - Bradycardia [None]
  - Dizziness postural [None]
  - Orthostatic hypotension [None]
  - Syncope [None]
  - Therapy change [None]
  - Dehydration [None]

NARRATIVE: CASE EVENT DATE: 20220927
